FAERS Safety Report 17029984 (Version 1)
Quarter: 2019Q4

REPORT INFORMATION
  Report Type: Spontaneous
  Country: IN (occurrence: IN)
  Receive Date: 20191114
  Receipt Date: 20191114
  Transmission Date: 20200122
  Serious: Yes (Life-Threatening, Hospitalization, Other)
  Sender: FDA-Public Use
  Company Number: IN-ACCORD-160601

PATIENT
  Age: 38 Year
  Sex: Female

DRUGS (1)
  1. METHOTREXATE. [Suspect]
     Active Substance: METHOTREXATE
     Indication: ECTOPIC PREGNANCY TERMINATION
     Dosage: SINGLE DOSE
     Route: 030

REACTIONS (14)
  - Mediastinitis [Recovering/Resolving]
  - Vomiting [Recovering/Resolving]
  - Bone marrow failure [Recovering/Resolving]
  - Hepatic enzyme increased [Recovering/Resolving]
  - Multiple organ dysfunction syndrome [Recovering/Resolving]
  - Respiratory alkalosis [Recovering/Resolving]
  - Renal impairment [Recovering/Resolving]
  - Melaena [Recovering/Resolving]
  - Anuria [Recovering/Resolving]
  - Rash maculo-papular [Recovering/Resolving]
  - Hypoxia [Recovering/Resolving]
  - Stomatitis [Recovering/Resolving]
  - Petechiae [Recovering/Resolving]
  - Maternal exposure during pregnancy [Unknown]
